FAERS Safety Report 16089606 (Version 1)
Quarter: 2019Q1

REPORT INFORMATION
  Report Type: Spontaneous
  Country: DE (occurrence: DE)
  Receive Date: 20190319
  Receipt Date: 20190319
  Transmission Date: 20190418
  Serious: Yes (Other)
  Sender: FDA-Public Use
  Company Number: DE-PFIZER INC-2019112460

PATIENT
  Age: 26 Year
  Sex: Female
  Weight: 60 kg

DRUGS (6)
  1. NARATRIPTAN [Suspect]
     Active Substance: NARATRIPTAN HYDROCHLORIDE
     Dosage: 4 DF, SINGLE
     Route: 048
     Dates: start: 20190215, end: 20190215
  2. ETORICOXIB BETA [Suspect]
     Active Substance: ETORICOXIB
     Dosage: UNK
     Route: 048
  3. DIMENHYDRINATE. [Suspect]
     Active Substance: DIMENHYDRINATE
     Indication: NAUSEA
     Dosage: UNK
  4. ETORICOXIB BETA [Suspect]
     Active Substance: ETORICOXIB
     Dosage: 240 MG SINGLE, (4 TABLETS MAXIMUM)
     Route: 048
     Dates: start: 20190215, end: 20190215
  5. VENLAFAXINE HCL [Suspect]
     Active Substance: VENLAFAXINE HYDROCHLORIDE
     Dosage: 9000 MG SINGLE (60 TABLETS MAXIMUM)
     Route: 048
     Dates: start: 20190215, end: 20190215
  6. DIMENHYDRINATE. [Suspect]
     Active Substance: DIMENHYDRINATE
     Indication: VOMITING
     Dosage: 4 DF, SINGLE
     Route: 048
     Dates: start: 20190215, end: 20190215

REACTIONS (2)
  - Slow response to stimuli [Unknown]
  - Accidental overdose [Unknown]
